FAERS Safety Report 5092910-X (Version None)
Quarter: 2006Q3

REPORT INFORMATION
  Report Type: 
  Country: None (occurrence: None)
  Receive Date: 20060727
  Receipt Date: 20060602
  Transmission Date: 20061208
  Serious: Yes (Other)
  Sender: FDA-Public Use
  Company Number: 2006035665

PATIENT
  Age: 55 Year
  Sex: Male

DRUGS (3)
  1. LYRICA [Suspect]
     Indication: ILL-DEFINED DISORDER
     Dosage: 150 MG (75 MG,2 IN 1 D)
  2. LYRICA [Suspect]
     Indication: PAIN
     Dosage: 150 MG (75 MG,2 IN 1 D)
  3. HYDROCODONE BITARTRATE + ACETAMINOPHEN [Concomitant]

REACTIONS (4)
  - HYPOMANIA [None]
  - LOGORRHOEA [None]
  - MANIA [None]
  - WEIGHT INCREASED [None]
